FAERS Safety Report 6347358-4 (Version None)
Quarter: 2009Q3

REPORT INFORMATION
  Report Type: 
  Country: None (occurrence: None)
  Receive Date: 20090910
  Receipt Date: 20090901
  Transmission Date: 20100115
  Serious: Yes (Other)
  Sender: FDA-Public Use
  Company Number: NO-ASTRAZENECA-2009SE11866

PATIENT
  Age: 59 Year
  Sex: Male

DRUGS (3)
  1. PROPOLIPID [Suspect]
     Indication: ANAESTHESIA
     Route: 040
     Dates: start: 20090115, end: 20090115
  2. ZOCOR [Concomitant]
  3. MAREVAN [Concomitant]

REACTIONS (1)
  - EPILEPSY [None]
